FAERS Safety Report 8959643 (Version 1)
Quarter: 2012Q4

REPORT INFORMATION
  Report Type: 
  Country: US (occurrence: US)
  Receive Date: 20121212
  Receipt Date: 20121212
  Transmission Date: 20130627
  Serious: No
  Sender: FDA-Public Use
  Company Number: US-TEVA-352755USA

PATIENT
  Sex: Female

DRUGS (2)
  1. BUDESONIDE [Suspect]
  2. BROVANA [Suspect]

REACTIONS (1)
  - Dyspnoea [Unknown]
